FAERS Safety Report 23938769 (Version 1)
Quarter: 2024Q2

REPORT INFORMATION
  Report Type: Report from Study
  Country: CA (occurrence: CA)
  Receive Date: 20240604
  Receipt Date: 20240604
  Transmission Date: 20240717
  Serious: Yes (Hospitalization)
  Sender: FDA-Public Use
  Company Number: CA-002147023-NVSC2023CA118846

PATIENT
  Sex: Male

DRUGS (3)
  1. HYRIMOZ [Suspect]
     Active Substance: ADALIMUMAB-ADAZ
     Indication: Rheumatoid arthritis
     Dosage: 40 MG, Q2W  (40MG/BIWEEKLY;EVERY TWO WEEKS)
     Route: 058
     Dates: start: 20220314
  2. HYRIMOZ [Suspect]
     Active Substance: ADALIMUMAB-ADAZ
     Dosage: 40MG/BIWEEKLY; EVERY TWO WEEKS
     Route: 058
     Dates: start: 20240603
  3. HYRIMOZ [Suspect]
     Active Substance: ADALIMUMAB-ADAZ
     Dosage: 40 MG
     Route: 058
     Dates: start: 20230523

REACTIONS (4)
  - Dizziness [Recovering/Resolving]
  - Fall [Recovering/Resolving]
  - Vision blurred [Unknown]
  - Inappropriate schedule of product administration [Unknown]
